FAERS Safety Report 17797626 (Version 1)
Quarter: 2020Q2

REPORT INFORMATION
  Report Type: Spontaneous
  Country: HR (occurrence: HR)
  Receive Date: 20200518
  Receipt Date: 20200518
  Transmission Date: 20200714
  Serious: Yes (Other)
  Sender: FDA-Public Use
  Company Number: HR-TEVA-2020-HR-1235581

PATIENT
  Age: 57 Year
  Sex: Female

DRUGS (3)
  1. NEOFEN (IBUPROFEN) [Suspect]
     Active Substance: IBUPROFEN
     Dosage: 16 DOSAGE FORMS
     Route: 048
     Dates: start: 20200417, end: 20200417
  2. OLANDIX [Suspect]
     Active Substance: OLANZAPINE
     Dosage: 5 DOSAGE FORMS
     Route: 048
     Dates: start: 20200417, end: 20200417
  3. PRAXITEN [Suspect]
     Active Substance: OXAZEPAM
     Route: 048
     Dates: start: 20200417, end: 20200417

REACTIONS (3)
  - Somnolence [Unknown]
  - Intentional overdose [Unknown]
  - Suicide attempt [Unknown]

NARRATIVE: CASE EVENT DATE: 20200417
